FAERS Safety Report 9933474 (Version 1)
Quarter: 2014Q1

REPORT INFORMATION
  Report Type: Spontaneous
  Country: US (occurrence: US)
  Receive Date: 20140228
  Receipt Date: 20140228
  Transmission Date: 20141002
  Serious: Yes (Other)
  Sender: FDA-Public Use
  Company Number: US-MYLANLABS-2013S1009428

PATIENT
  Sex: Male

DRUGS (2)
  1. AMNESTEEM CAPSULES [Suspect]
     Route: 048
     Dates: start: 200605, end: 200607
  2. CLARAVIS [Suspect]
     Route: 048
     Dates: start: 200606, end: 200610

REACTIONS (1)
  - Inflammatory bowel disease [Not Recovered/Not Resolved]
